FAERS Safety Report 24712350 (Version 1)
Quarter: 2024Q4

REPORT INFORMATION
  Report Type: Report from Study
  Country: CA (occurrence: CA)
  Receive Date: 20241209
  Receipt Date: 20241209
  Transmission Date: 20250114
  Serious: Yes (Hospitalization)
  Sender: ALNYLAM PHARMACEUTICALS
  Company Number: CA-ALNYLAM PHARMACEUTICALS, INC.-ALN-2024-006796

PATIENT

DRUGS (14)
  1. ONPATTRO [Suspect]
     Active Substance: PATISIRAN SODIUM
     Indication: Hereditary neuropathic amyloidosis
     Dosage: 0.3 MILLIGRAM/KILOGRAM, Q3W
     Route: 042
     Dates: start: 20190911, end: 20190911
  2. ONPATTRO [Suspect]
     Active Substance: PATISIRAN SODIUM
     Dosage: 28.1 MILLIGRAM, Q3W
     Route: 042
     Dates: start: 20241113, end: 20241113
  3. TAFAMIDIS [Concomitant]
     Active Substance: TAFAMIDIS
     Indication: Product used for unknown indication
     Dosage: 80 MILLIGRAM
     Route: 065
     Dates: start: 20200328
  4. FAMOTIDINE [Concomitant]
     Active Substance: FAMOTIDINE
     Indication: Product used for unknown indication
     Dosage: 40 MILLIGRAM
     Route: 048
     Dates: start: 20210707
  5. DEXAMETHASONE [Concomitant]
     Active Substance: DEXAMETHASONE
     Indication: Product used for unknown indication
     Dosage: 10 MILLIGRAM
     Route: 042
     Dates: start: 20190911
  6. DIPHENHYDRAMINE [Concomitant]
     Active Substance: DIPHENHYDRAMINE
     Indication: Product used for unknown indication
     Dosage: 50 MILLIGRAM
     Route: 042
     Dates: start: 20190911
  7. ACETAMINOPHEN [Concomitant]
     Active Substance: ACETAMINOPHEN
     Indication: Product used for unknown indication
     Dosage: 500 MILLIGRAM
     Route: 048
     Dates: start: 20190911
  8. VITAMIN A [Concomitant]
     Active Substance: VITAMIN A
     Indication: Product used for unknown indication
     Dosage: 3000 INTERNATIONAL UNIT
     Route: 065
     Dates: start: 20190902
  9. LASIX [Concomitant]
     Active Substance: FUROSEMIDE
     Indication: Product used for unknown indication
     Dosage: UNK
     Route: 065
  10. LANSOPRAZOLE [Concomitant]
     Active Substance: LANSOPRAZOLE
     Indication: Product used for unknown indication
     Dosage: 30 MILLIGRAM
     Route: 065
     Dates: start: 2018
  11. ATORVASTATIN CALCIUM [Concomitant]
     Active Substance: ATORVASTATIN CALCIUM
     Indication: Product used for unknown indication
     Dosage: 40 MILLIGRAM
     Route: 065
     Dates: start: 2016
  12. TEVA RAMIPRIL/HCTZ [Concomitant]
     Indication: Product used for unknown indication
     Dosage: 10 MILLIGRAM
     Route: 065
     Dates: start: 2016
  13. AMITRIPTYLINE [Concomitant]
     Active Substance: AMITRIPTYLINE
     Indication: Product used for unknown indication
     Dosage: 10 MILLIGRAM
     Route: 065
     Dates: start: 201908
  14. GABAPENTIN [Concomitant]
     Active Substance: GABAPENTIN
     Indication: Product used for unknown indication
     Dosage: 2400 MILLIGRAM
     Route: 065
     Dates: start: 2018

REACTIONS (1)
  - Localised infection [Unknown]

NARRATIVE: CASE EVENT DATE: 20241202
